FAERS Safety Report 24538017 (Version 1)
Quarter: 2024Q4

REPORT INFORMATION
  Report Type: Other
  Country: US (occurrence: US)
  Receive Date: 20241023
  Receipt Date: 20241023
  Transmission Date: 20250115
  Serious: Yes (Other)
  Sender: APOTEX
  Company Number: US-APOTEX-2024AP012048

PATIENT
  Sex: Male

DRUGS (1)
  1. LENALIDOMIDE [Suspect]
     Active Substance: LENALIDOMIDE
     Indication: Product used for unknown indication
     Dosage: 25 MILLIGRAM
     Route: 065
     Dates: start: 202310

REACTIONS (5)
  - Plasma cell myeloma recurrent [Unknown]
  - Surgery [Unknown]
  - Dry eye [Unknown]
  - Entropion [Unknown]
  - Superficial injury of eye [Unknown]
